FAERS Safety Report 9696830 (Version 2)
Quarter: 2015Q3

REPORT INFORMATION
  Report Type: Spontaneous
  Country: US (occurrence: US)
  Receive Date: 20131119
  Receipt Date: 20150803
  Transmission Date: 20151125
  Serious: No
  Sender: FDA-Public Use
  Company Number: US-GILEAD-2007-0013546

PATIENT
  Age: 47 Year
  Sex: Male
  Weight: 103.42 kg

DRUGS (17)
  1. SPIRIVA [Concomitant]
     Active Substance: TIOTROPIUM BROMIDE MONOHYDRATE
     Route: 055
  2. LANTUS [Concomitant]
     Active Substance: INSULIN GLARGINE
     Route: 058
  3. REVATIO [Concomitant]
     Active Substance: SILDENAFIL CITRATE
     Route: 048
  4. ADVAIR HFA [Concomitant]
     Active Substance: FLUTICASONE PROPIONATE\SALMETEROL XINAFOATE
     Route: 055
  5. INSPRA [Concomitant]
     Active Substance: EPLERENONE
     Route: 048
  6. COUMADIN [Concomitant]
     Active Substance: WARFARIN SODIUM
     Route: 048
  7. CAPTOPRIL. [Concomitant]
     Active Substance: CAPTOPRIL
     Route: 048
  8. LETAIRIS [Suspect]
     Active Substance: AMBRISENTAN
     Indication: PULMONARY ARTERIAL HYPERTENSION
     Route: 048
     Dates: start: 20070816, end: 20070911
  9. DIGOXIN. [Concomitant]
     Active Substance: DIGOXIN
     Route: 048
  10. TORSEMIDE. [Concomitant]
     Active Substance: TORSEMIDE
     Route: 048
  11. LEVOTHYROXINE. [Concomitant]
     Active Substance: LEVOTHYROXINE
     Route: 048
  12. MAALOX MS LIQUID [Concomitant]
     Route: 048
  13. COREG [Concomitant]
     Active Substance: CARVEDILOL
     Route: 048
  14. OXYGEN. [Concomitant]
     Active Substance: OXYGEN
     Dosage: CONTINUOUS
     Route: 045
  15. POTASSIUM CHLORIDE. [Concomitant]
     Active Substance: POTASSIUM CHLORIDE
     Route: 048
  16. ALBUTEROL. [Concomitant]
     Active Substance: ALBUTEROL
     Route: 055
  17. ASPIRIN. [Concomitant]
     Active Substance: ASPIRIN
     Route: 048

REACTIONS (2)
  - Dyspnoea [Unknown]
  - Palpitations [Unknown]
